FAERS Safety Report 13766936 (Version 2)
Quarter: 2017Q3

REPORT INFORMATION
  Report Type: Spontaneous
  Country: US (occurrence: US)
  Receive Date: 20170719
  Receipt Date: 20170720
  Transmission Date: 20171127
  Serious: Yes (Hospitalization)
  Sender: FDA-Public Use
  Company Number: US-009507513-1707USA005358

PATIENT
  Sex: Female

DRUGS (1)
  1. NEXPLANON [Suspect]
     Active Substance: ETONOGESTREL
     Indication: CONTRACEPTION
     Dosage: 1 DF, UNK
     Route: 059

REACTIONS (3)
  - Implant site induration [Recovering/Resolving]
  - Implant site erythema [Recovering/Resolving]
  - Implant site reaction [Recovering/Resolving]

NARRATIVE: CASE EVENT DATE: 20170707
